FAERS Safety Report 10202352 (Version 1)
Quarter: 2014Q2

REPORT INFORMATION
  Report Type: Spontaneous
  Country: US (occurrence: US)
  Receive Date: 20140528
  Receipt Date: 20140528
  Transmission Date: 20141212
  Serious: Yes (Hospitalization)
  Sender: FDA-Public Use
  Company Number: US-BANPHARM-20142706

PATIENT
  Age: 13 Year
  Sex: Female
  Weight: 59 kg

DRUGS (6)
  1. DIPHENHYDRAMINE UNKNOWN PRODUCT [Suspect]
     Indication: SUICIDE ATTEMPT
     Route: 048
  2. ACETAMINOPHEN [Suspect]
     Indication: SUICIDE ATTEMPT
  3. BUPROPION [Suspect]
     Indication: SUICIDE ATTEMPT
  4. CITALOPRAM [Suspect]
     Indication: SUICIDE ATTEMPT
  5. NAPROXEN UNKNOWN PRODUCT [Suspect]
     Indication: SUICIDE ATTEMPT
  6. OMEPRAZOLE [Suspect]
     Indication: SUICIDE ATTEMPT

REACTIONS (30)
  - Toxicity to various agents [Unknown]
  - Rhabdomyolysis [Unknown]
  - Intentional overdose [None]
  - Suicide attempt [None]
  - Agitation [None]
  - Hallucination [None]
  - Mydriasis [None]
  - Flushing [None]
  - Mucosal dryness [None]
  - Urinary retention [None]
  - Tremor [None]
  - Dermatillomania [None]
  - Myoclonus [None]
  - Hypertension [None]
  - Hyperthermia [None]
  - Sinus tachycardia [None]
  - Tachypnoea [None]
  - Electrocardiogram QRS complex shortened [None]
  - Electrocardiogram QT prolonged [None]
  - Muscle rigidity [None]
  - Gastrointestinal sounds abnormal [None]
  - Hyperhidrosis [None]
  - Blood potassium decreased [None]
  - Blood bicarbonate decreased [None]
  - Blood glucose increased [None]
  - Blood calcium decreased [None]
  - Blood magnesium decreased [None]
  - Anxiety [None]
  - Disorientation [None]
  - Clonus [None]
